FAERS Safety Report 8939150 (Version 4)
Quarter: 2013Q2

REPORT INFORMATION
  Report Type: Spontaneous
  Country: US (occurrence: US)
  Receive Date: 20121203
  Receipt Date: 20130425
  Transmission Date: 20140414
  Serious: No
  Sender: FDA-Public Use
  Company Number: US-PFIZER INC-2012299134

PATIENT
  Age: 75 Year
  Sex: Male
  Weight: 76.19 kg

DRUGS (14)
  1. SUTENT [Suspect]
     Indication: RENAL CANCER
     Dosage: 50 MG, UNK
     Dates: start: 20121113
  2. SUTENT [Suspect]
     Indication: METASTATIC RENAL CELL CARCINOMA
     Dosage: 50 MG, 1X/DAY
     Route: 048
     Dates: start: 201302, end: 201303
  3. SUTENT [Suspect]
     Dosage: 50 MG, ALTERNATE DAY
     Route: 048
     Dates: start: 201303
  4. AMBIEN CR [Concomitant]
     Dosage: 10 MG, UNK
  5. FINASTERIDE [Concomitant]
     Dosage: 5 MG, UNK
  6. INTEGRA F [Concomitant]
     Indication: HAEMOGLOBIN DECREASED
     Dosage: UNK
  7. LISINOPRIL [Concomitant]
     Dosage: UNK
  8. METHOCARBAMOL [Concomitant]
     Dosage: UNK
  9. OXYCODONE HCL [Concomitant]
     Dosage: UNK
  10. SIMVASTATIN [Concomitant]
     Dosage: 40 MG, UNK
  11. TERAZOSIN HCL [Concomitant]
     Dosage: 5 MG, UNK
  12. ZOLPIDEM [Concomitant]
  13. LISINOPRIL W/HYDROCHLOROTHIAZIDE [Concomitant]
     Dosage: 20/25 MG
  14. ACETAMINOPHEN W/CODEINE [Concomitant]
     Dosage: UNK

REACTIONS (9)
  - Stomatitis [Unknown]
  - Decreased appetite [Unknown]
  - Hypertension [Unknown]
  - Blister [Not Recovered/Not Resolved]
  - Haemoglobin decreased [Recovered/Resolved]
  - Red blood cell count decreased [Unknown]
  - White blood cell count decreased [Unknown]
  - Local swelling [Not Recovered/Not Resolved]
  - Local swelling [Not Recovered/Not Resolved]
